FAERS Safety Report 6869384-9 (Version None)
Quarter: 2010Q3

REPORT INFORMATION
  Report Type: 
  Country: None (occurrence: None)
  Receive Date: 20100722
  Receipt Date: 20080729
  Transmission Date: 20110219
  Serious: No
  Sender: FDA-Public Use
  Company Number: US-PFIZER INC-2008064843

PATIENT
  Sex: Female
  Weight: 56.8 kg

DRUGS (6)
  1. CHANTIX [Suspect]
     Indication: SMOKING CESSATION THERAPY
     Dates: start: 20080501
  2. SPIRIVA [Concomitant]
  3. FLOVENT [Concomitant]
  4. CYMBALTA [Concomitant]
  5. SEROQUEL [Concomitant]
  6. VERAPAMIL [Concomitant]

REACTIONS (3)
  - ABNORMAL DREAMS [None]
  - NAUSEA [None]
  - WEIGHT INCREASED [None]
